FAERS Safety Report 11558319 (Version 1)
Quarter: 2015Q3

REPORT INFORMATION
  Report Type: Spontaneous
  Country: BR (occurrence: BR)
  Receive Date: 20150928
  Receipt Date: 20150928
  Transmission Date: 20151125
  Serious: Yes (Other)
  Sender: FDA-Public Use
  Company Number: BR-ROCHE-1638909

PATIENT
  Age: 72 Year
  Sex: Male
  Weight: 75 kg

DRUGS (10)
  1. RIVOTRIL [Suspect]
     Active Substance: CLONAZEPAM
     Indication: INSOMNIA
     Route: 065
  2. RIVOTRIL [Suspect]
     Active Substance: CLONAZEPAM
     Indication: NERVOUSNESS
  3. DIAZEPAM. [Suspect]
     Active Substance: DIAZEPAM
     Indication: ANXIETY
  4. CLONAZEPAM. [Suspect]
     Active Substance: CLONAZEPAM
     Indication: ANXIETY
  5. DIAZEPAM. [Suspect]
     Active Substance: DIAZEPAM
     Indication: NERVOUSNESS
  6. CLONAZEPAM. [Suspect]
     Active Substance: CLONAZEPAM
     Indication: INSOMNIA
     Route: 065
  7. VALIUM [Concomitant]
     Active Substance: DIAZEPAM
     Route: 065
  8. RIVOTRIL [Suspect]
     Active Substance: CLONAZEPAM
     Indication: ANXIETY
  9. DIAZEPAM. [Suspect]
     Active Substance: DIAZEPAM
     Indication: INSOMNIA
     Route: 065
  10. CLONAZEPAM. [Suspect]
     Active Substance: CLONAZEPAM
     Indication: NERVOUSNESS

REACTIONS (1)
  - Parkinson^s disease [Not Recovered/Not Resolved]
